FAERS Safety Report 26099524 (Version 1)
Quarter: 2025Q4

REPORT INFORMATION
  Report Type: Spontaneous
  Country: GB (occurrence: GB)
  Receive Date: 20251128
  Receipt Date: 20251128
  Transmission Date: 20260117
  Serious: Yes (Hospitalization, Other)
  Sender: TEVA
  Company Number: GB-PHARMVIT-4556-2425-ER25-RN1679

PATIENT
  Age: 54 Year
  Sex: Male

DRUGS (1)
  1. NAPROXEN [Suspect]
     Active Substance: NAPROXEN
     Indication: Arthralgia
     Route: 065

REACTIONS (1)
  - Cutaneous vasculitis [Recovered/Resolved]
